FAERS Safety Report 8295949-6 (Version None)
Quarter: 2012Q2

REPORT INFORMATION
  Report Type: 
  Country: None (occurrence: None)
  Receive Date: 20120418
  Receipt Date: 20120405
  Transmission Date: 20120825
  Serious: Yes (Hospitalization)
  Sender: FDA-Public Use
  Company Number: US-JNJFOC-20110703057

PATIENT
  Sex: Male
  Weight: 68.9 kg

DRUGS (11)
  1. ABIRATERONE ACETATE [Suspect]
     Route: 048
  2. SLOW-K [Concomitant]
     Route: 065
  3. DISFLATYL [Concomitant]
     Indication: FLATULENCE
     Route: 065
     Dates: start: 20110629
  4. MOTILIUM [Concomitant]
     Route: 065
  5. ABIRATERONE ACETATE [Suspect]
     Indication: PROSTATE CANCER METASTATIC
     Route: 048
     Dates: start: 20110504
  6. CAPOTEN [Concomitant]
     Route: 065
  7. ASPOCID [Concomitant]
     Route: 065
  8. CHLORTETRACYCLINE HCL [Concomitant]
     Indication: DRUG HYPERSENSITIVITY
     Route: 045
  9. PREDNISONE TAB [Suspect]
     Indication: PROSTATE CANCER METASTATIC
     Route: 065
     Dates: start: 20110504
  10. BISOPROLOL FUMARATE [Concomitant]
     Route: 065
  11. LANOXIN [Concomitant]
     Indication: ATRIAL FIBRILLATION
     Route: 065
     Dates: end: 20110629

REACTIONS (3)
  - GASTROENTERITIS [None]
  - PYREXIA [None]
  - ATRIAL FIBRILLATION [None]
